FAERS Safety Report 7850050-8 (Version None)
Quarter: 2011Q4

REPORT INFORMATION
  Report Type: 
  Country: None (occurrence: None)
  Receive Date: 20111026
  Receipt Date: 20111013
  Transmission Date: 20120403
  Serious: Yes (Hospitalization, Other)
  Sender: FDA-Public Use
  Company Number: US-BAYER-2011-027004

PATIENT
  Sex: Female
  Weight: 124.72 kg

DRUGS (3)
  1. YAZ [Suspect]
     Dosage: UNK
     Route: 048
     Dates: start: 20060101, end: 20070101
  2. IBUPROFEN [Concomitant]
     Dosage: UNK
     Dates: start: 20030101, end: 20100101
  3. LABETALOL HCL [Concomitant]
     Dosage: UNK
     Dates: start: 20060101, end: 20080101

REACTIONS (10)
  - CHROMATURIA [None]
  - DYSSTASIA [None]
  - EMOTIONAL DISTRESS [None]
  - ANHEDONIA [None]
  - PAIN [None]
  - INJURY [None]
  - CHOLECYSTECTOMY [None]
  - GALLBLADDER DISORDER [None]
  - GENERAL PHYSICAL HEALTH DETERIORATION [None]
  - ANXIETY [None]
